FAERS Safety Report 13054739 (Version 5)
Quarter: 2017Q2

REPORT INFORMATION
  Report Type: Spontaneous
  Country: PL (occurrence: PL)
  Receive Date: 20161222
  Receipt Date: 20170420
  Transmission Date: 20170830
  Serious: Yes (Other)
  Sender: FDA-Public Use
  Company Number: PL-BAYER-2016-235545

PATIENT
  Age: 34 Year
  Sex: Male
  Weight: 78 kg

DRUGS (1)
  1. ASPIRIN 500 MG [Suspect]
     Active Substance: ASPIRIN
     Indication: PYREXIA
     Dosage: UNK
     Route: 048
     Dates: start: 20161210

REACTIONS (10)
  - Oesophageal pain [None]
  - Oropharyngeal pain [Not Recovered/Not Resolved]
  - Loss of consciousness [None]
  - Malaise [None]
  - Poor quality drug administered [None]
  - Vomiting [None]
  - Diarrhoea [None]
  - Product packaging issue [None]
  - Product odour abnormal [None]
  - Product physical consistency issue [None]

NARRATIVE: CASE EVENT DATE: 20161210
